FAERS Safety Report 9340656 (Version 2)
Quarter: 2013Q2

REPORT INFORMATION
  Report Type: Spontaneous
  Country: DE (occurrence: PT)
  Receive Date: 20130610
  Receipt Date: 20130617
  Transmission Date: 20140414
  Serious: Yes (Disabling)
  Sender: FDA-Public Use
  Company Number: PT-FRI-1000045751

PATIENT
  Age: 76 Year
  Sex: Female
  Weight: 64 kg

DRUGS (5)
  1. MEMANTINE [Suspect]
     Indication: DEMENTIA ALZHEIMER^S TYPE
     Dosage: 20 MG
     Route: 048
     Dates: start: 201301, end: 20130606
  2. PAXILFAR [Concomitant]
     Indication: PAIN
     Dosage: 200-300 MG DAILY
     Route: 048
     Dates: start: 2000
  3. PLAQUINOL [Concomitant]
     Indication: RHEUMATOID ARTHRITIS
     Dosage: 200 MG
     Route: 048
     Dates: start: 2012
  4. COLCHICINE [Concomitant]
     Indication: RHEUMATOID ARTHRITIS
     Dosage: 0.5 MG
     Route: 048
     Dates: start: 2012
  5. ALPRAZOLAM [Concomitant]
     Indication: INSOMNIA
     Dosage: 1 MG
     Route: 048

REACTIONS (1)
  - Fungal infection [Not Recovered/Not Resolved]
